FAERS Safety Report 14347617 (Version 1)
Quarter: 2018Q1

REPORT INFORMATION
  Report Type: Spontaneous
  Country: FR (occurrence: FR)
  Receive Date: 20180103
  Receipt Date: 20180103
  Transmission Date: 20180509
  Serious: Yes (Life-Threatening, Hospitalization)
  Sender: FDA-Public Use
  Company Number: FR-TEVA-2017-FR-841751

PATIENT
  Age: 0 Day
  Sex: Female
  Weight: 1.49 kg

DRUGS (6)
  1. ONCOVIN [Suspect]
     Active Substance: VINCRISTINE SULFATE
     Indication: B PRECURSOR TYPE ACUTE LEUKAEMIA
     Route: 064
  2. PREDNISONE. [Suspect]
     Active Substance: PREDNISONE
     Route: 064
     Dates: start: 20161019
  3. DEXAMETHASONE. [Suspect]
     Active Substance: DEXAMETHASONE
     Indication: PROPHYLAXIS
     Route: 064
  4. DAUNORUBICINE [Suspect]
     Active Substance: DAUNORUBICIN
     Route: 065
  5. CELESTENE 4 MG/1 ML, SOLUTION INJECTABLE [Suspect]
     Active Substance: BETAMETHASONE
     Indication: MATURE B-CELL TYPE ACUTE LEUKAEMIA
     Route: 064
  6. ASPARAGINASE [Suspect]
     Active Substance: ASPARAGINASE
     Indication: B PRECURSOR TYPE ACUTE LEUKAEMIA
     Route: 064

REACTIONS (5)
  - Anaemia neonatal [None]
  - Neonatal respiratory distress syndrome [Recovered/Resolved]
  - Premature delivery [Recovered/Resolved]
  - Foetal exposure during pregnancy [None]
  - Anaemia [Recovering/Resolving]

NARRATIVE: CASE EVENT DATE: 20161129
